FAERS Safety Report 10213694 (Version 1)
Quarter: 2014Q2

REPORT INFORMATION
  Report Type: Other
  Country: GB (occurrence: GB)
  Receive Date: 20140603
  Receipt Date: 20140603
  Transmission Date: 20141212
  Serious: Yes (Hospitalization, Other)
  Sender: FDA-Public Use
  Company Number: GB-SUN PHARMACEUTICAL INDUSTRIES LTD-2014SUN01174

PATIENT
  Sex: 0

DRUGS (1)
  1. SUMATRIPTAN SUCCINATE TABS 50MG [Suspect]
     Indication: MIGRAINE
     Dosage: 50 MG, 3 SUMATRIPTAN 50 MG  A MONTH
     Route: 065

REACTIONS (2)
  - Adrenal disorder [Unknown]
  - Wolff-Parkinson-White syndrome [Unknown]
